FAERS Safety Report 6030362-3 (Version None)
Quarter: 2009Q1

REPORT INFORMATION
  Report Type: 
  Country: None (occurrence: None)
  Receive Date: 20090107
  Receipt Date: 20080724
  Transmission Date: 20090719
  Serious: No
  Sender: FDA-Public Use
  Company Number: US-BAYER-200813168BCC

PATIENT
  Age: 66 Year
  Sex: Female
  Weight: 64 kg

DRUGS (5)
  1. ALEVE [Suspect]
     Indication: ARTHRITIS
     Dosage: TOTAL DAILY DOSE: 220 MG  UNIT DOSE: 220 MG
     Dates: start: 20080501
  2. ALEVE [Suspect]
     Dosage: TOTAL DAILY DOSE: 440 MG  UNIT DOSE: 220 MG
  3. METOPROLOL [Concomitant]
  4. VITAMIN E [Concomitant]
  5. ASCORBIC ACID [Concomitant]

REACTIONS (1)
  - ARTHRITIS [None]
